FAERS Safety Report 4714320-4 (Version None)
Quarter: 2005Q3

REPORT INFORMATION
  Report Type: 
  Country: None (occurrence: None)
  Receive Date: 20050705
  Receipt Date: 20050329
  Transmission Date: 20060218
  Serious: Yes (Other)
  Sender: FDA-Public Use
  Company Number: 2005-0008197

PATIENT
  Age: 56 Year
  Sex: Female

DRUGS (3)
  1. TRUVADA [Suspect]
     Indication: HIV INFECTION
     Dates: start: 20041101
  2. KALETRA [Concomitant]
  3. NSAIDS (ANTIINFLAMMATORY/ANTIRHEUMATIC NON-STEROIDS) [Concomitant]

REACTIONS (1)
  - RENAL FAILURE ACUTE [None]
